FAERS Safety Report 15432191 (Version 2)
Quarter: 2018Q4

REPORT INFORMATION
  Report Type: Spontaneous
  Country: US (occurrence: US)
  Receive Date: 20180926
  Receipt Date: 20181217
  Transmission Date: 20190204
  Serious: Yes (Death, Other)
  Sender: FDA-Public Use
  Company Number: US-GE HEALTHCARE LIFE SCIENCES-2018CSU003778

PATIENT
  Age: 85 Year
  Sex: Male

DRUGS (24)
  1. LOVENOX [Concomitant]
     Active Substance: ENOXAPARIN SODIUM
     Dosage: 40 MG, QD
     Route: 058
     Dates: start: 20160531, end: 20160609
  2. NARCAN [Concomitant]
     Active Substance: NALOXONE HYDROCHLORIDE
     Dosage: UNK
     Dates: start: 20160601
  3. MUCOMYST [Concomitant]
     Active Substance: ACETYLCYSTEINE
     Dosage: 6 ML, BID
     Route: 048
     Dates: start: 20160530, end: 20160601
  4. CELEXA [Concomitant]
     Active Substance: CITALOPRAM HYDROBROMIDE
     Dosage: 10 MG, QD
     Route: 048
     Dates: start: 20160529, end: 20160605
  5. CATAPRES                           /00171101/ [Concomitant]
     Active Substance: CLONIDINE
     Dosage: 0.1 MG, PRN (EVERY 6 HOURS)
     Route: 048
     Dates: start: 20160528, end: 20160608
  6. PEPCID [Concomitant]
     Active Substance: FAMOTIDINE
     Dosage: 20 MG, QD (AT BEDTIME)
     Route: 048
     Dates: start: 20160528, end: 20160605
  7. FLONASE [Concomitant]
     Active Substance: FLUTICASONE PROPIONATE
     Dosage: 2 SPRAYS, QD
     Route: 055
     Dates: start: 20160529, end: 20160615
  8. TECHNETIUM TC 99M [Suspect]
     Active Substance: TECHNETIUM TC-99M
     Dosage: UNK, SINGLE
     Route: 042
     Dates: start: 20160601, end: 20160601
  9. NORVASC [Concomitant]
     Active Substance: AMLODIPINE BESYLATE
     Dosage: 5 MG, QD
     Route: 048
     Dates: start: 20160531, end: 20160605
  10. PLAVIX [Concomitant]
     Active Substance: CLOPIDOGREL BISULFATE
     Dosage: 75 MG, QD
     Route: 048
     Dates: start: 20160529, end: 20160602
  11. SYNTHROID [Concomitant]
     Active Substance: LEVOTHYROXINE SODIUM
     Indication: HYPOTHYROIDISM
     Dosage: 88 MCG, QD
     Dates: start: 20160529, end: 20160605
  12. TYLENOL [Concomitant]
     Active Substance: ACETAMINOPHEN
     Indication: PAIN
     Dosage: 1000 MG, PRN (EVERY 6 HRS)
     Dates: start: 20160528, end: 20160608
  13. ECOTRIN [Concomitant]
     Active Substance: ASPIRIN
     Dosage: 325 MG, QD
     Route: 048
     Dates: start: 20160530, end: 20160602
  14. DULCOLAX (BISACODYL) [Concomitant]
     Active Substance: BISACODYL
     Indication: CONSTIPATION
     Dosage: 5 MG, PRN
     Route: 048
  15. NITROSTAT [Concomitant]
     Active Substance: NITROGLYCERIN
     Indication: CHEST PAIN
     Dosage: 0.4 MG, PRN (EVERY 5 MIN)
     Route: 060
     Dates: start: 20160528, end: 20160615
  16. MYOVIEW [Suspect]
     Active Substance: TECHNETIUM TC-99M TETROFOSMIN
     Dosage: 1221 MBQ, SINGLE
     Route: 042
     Dates: start: 20160601, end: 20160601
  17. ZYLOPRIM [Concomitant]
     Active Substance: ALLOPURINOL
     Dosage: 400 MG, QD
     Route: 048
     Dates: start: 20160530, end: 20160605
  18. FERROUS SULFATE. [Concomitant]
     Active Substance: FERROUS SULFATE
     Dosage: 325 MG, QD
     Route: 048
     Dates: start: 20160529, end: 20160605
  19. ZOFRAN [Concomitant]
     Active Substance: ONDANSETRON HYDROCHLORIDE
     Indication: NAUSEA
     Dosage: 4 MG, PRN (EVERY 8 HRS)
     Route: 042
     Dates: start: 20160528, end: 20160610
  20. MYOVIEW [Suspect]
     Active Substance: TECHNETIUM TC-99M TETROFOSMIN
     Indication: TROPONIN INCREASED
     Dosage: 395.9 MBQ, SINGLE
     Route: 042
     Dates: start: 20160601, end: 20160601
  21. LOPRESSOR [Concomitant]
     Active Substance: METOPROLOL TARTRATE
     Dosage: 50 MG, BID (2 TABLETS IN THE MORNING AND 1 TABLET IN THE EVENING)
     Route: 048
     Dates: start: 20160529, end: 20160602
  22. TECHNETIUM TC 99M [Suspect]
     Active Substance: TECHNETIUM TC-99M
     Dosage: UNK, SINGLE
     Route: 042
     Dates: start: 20160601, end: 20160601
  23. LEXISCAN [Suspect]
     Active Substance: REGADENOSON
     Indication: CHEST PAIN
     Dosage: 0.4 MG, SINGLE
     Route: 042
  24. SODIUM CHLORIDE. [Concomitant]
     Active Substance: SODIUM CHLORIDE
     Dosage: UNK, CONTINUOUS
     Route: 041
     Dates: start: 20160530, end: 20160601

REACTIONS (8)
  - Seizure [Unknown]
  - Nausea [Unknown]
  - Acute kidney injury [Fatal]
  - Cholecystitis acute [Fatal]
  - Cardiac failure congestive [Fatal]
  - Respiratory depression [Unknown]
  - Sepsis [Fatal]
  - Asthenia [Unknown]

NARRATIVE: CASE EVENT DATE: 20160601
